FAERS Safety Report 4946835-8 (Version None)
Quarter: 2006Q1

REPORT INFORMATION
  Report Type: 
  Country: None (occurrence: None)
  Receive Date: 20060317
  Receipt Date: 20051005
  Transmission Date: 20060701
  Serious: Yes (Other)
  Sender: FDA-Public Use
  Company Number: US-MERCK-0510USA04404

PATIENT
  Age: 55 Year
  Sex: Male
  Weight: 81 kg

DRUGS (2)
  1. VIOXX [Suspect]
     Indication: ARTHRITIS
     Route: 048
     Dates: start: 20000101, end: 20000901
  2. VIOXX [Suspect]
     Route: 048
     Dates: start: 20030922

REACTIONS (13)
  - BURNS FIRST DEGREE [None]
  - CARDIOVASCULAR DISORDER [None]
  - CEREBRAL HAEMORRHAGE [None]
  - ERECTILE DYSFUNCTION [None]
  - GASTROINTESTINAL PAIN [None]
  - HYPERLIPIDAEMIA [None]
  - HYPERTENSION [None]
  - INFLUENZA LIKE ILLNESS [None]
  - NEUROPATHY [None]
  - OSTEOARTHRITIS [None]
  - PROSTATITIS [None]
  - ROAD TRAFFIC ACCIDENT [None]
  - WRIST FRACTURE [None]
